FAERS Safety Report 12403293 (Version 1)
Quarter: 2016Q2

REPORT INFORMATION
  Report Type: Spontaneous
  Country: HR (occurrence: HR)
  Receive Date: 20160525
  Receipt Date: 20160525
  Transmission Date: 20160815
  Serious: Yes (Life-Threatening, Hospitalization, Other)
  Sender: FDA-Public Use
  Company Number: HR-AMGEN-HRVSP2016065108

PATIENT
  Age: 41 Year
  Sex: Female

DRUGS (29)
  1. ENBREL [Suspect]
     Active Substance: ETANERCEPT
     Indication: RHEUMATOID ARTHRITIS
     Dosage: UNK
     Route: 065
     Dates: start: 201407
  2. HUMIRA [Suspect]
     Active Substance: ADALIMUMAB
     Dosage: 40 MG, UNK
     Route: 058
     Dates: start: 201601
  3. ARAVA [Suspect]
     Active Substance: LEFLUNOMIDE
     Dosage: 20 MG, UNK
     Route: 048
     Dates: start: 201001, end: 201103
  4. DECORTIN [Concomitant]
     Active Substance: PREDNISONE
     Dosage: REDUCTION TO 5 MG
     Dates: start: 200712
  5. DECORTIN [Concomitant]
     Active Substance: PREDNISONE
     Dosage: 10-5 MGUNK
     Dates: start: 201001, end: 201103
  6. ARAVA [Suspect]
     Active Substance: LEFLUNOMIDE
     Dosage: 20 MG, UNK
     Route: 048
     Dates: start: 200907
  7. VITAMIN D [Concomitant]
     Active Substance: CHOLECALCIFEROL
     Dosage: UNK
     Dates: start: 200712
  8. SULFASALAZINE. [Suspect]
     Active Substance: SULFASALAZINE
     Dosage: UNK
     Route: 048
     Dates: start: 201103, end: 201103
  9. DECORTIN [Concomitant]
     Active Substance: PREDNISONE
     Indication: RHEUMATOID ARTHRITIS
     Dosage: UNK
     Dates: start: 200707
  10. DECORTIN [Concomitant]
     Active Substance: PREDNISONE
     Dosage: 10-5 MG
     Dates: start: 201407
  11. CALCIUM [Concomitant]
     Active Substance: CALCIUM
     Dosage: UNK
     Dates: start: 200712
  12. DECORTIN [Concomitant]
     Active Substance: PREDNISONE
     Dosage: 7.5-10 MGUNK
     Dates: start: 201603
  13. SULFASALAZINE. [Suspect]
     Active Substance: SULFASALAZINE
     Dosage: UNK
     Route: 048
     Dates: start: 201001, end: 201004
  14. HUMIRA [Suspect]
     Active Substance: ADALIMUMAB
     Dosage: 40 MG, UNK
     Route: 058
     Dates: start: 201212, end: 201304
  15. PREDNISONE. [Concomitant]
     Active Substance: PREDNISONE
     Indication: RHEUMATOID ARTHRITIS
     Dosage: 10 MG, UNK
     Route: 048
     Dates: start: 201001, end: 201004
  16. DECORTIN [Concomitant]
     Active Substance: PREDNISONE
     Dosage: 15-10 MG
     Dates: start: 201309
  17. DECORTIN [Concomitant]
     Active Substance: PREDNISONE
     Dosage: 10-5 MG
     Dates: start: 201403
  18. DECORTIN [Concomitant]
     Active Substance: PREDNISONE
     Dosage: UNK
     Dates: start: 201511
  19. HUMIRA [Suspect]
     Active Substance: ADALIMUMAB
     Dosage: 40 MG, UNK
     Route: 058
     Dates: start: 201108
  20. ARAVA [Suspect]
     Active Substance: LEFLUNOMIDE
     Indication: RHEUMATOID ARTHRITIS
     Dosage: UNK
     Route: 048
     Dates: start: 200802
  21. SULFASALAZINE. [Suspect]
     Active Substance: SULFASALAZINE
     Dosage: UNK
     Route: 048
     Dates: start: 201304
  22. HUMIRA [Suspect]
     Active Substance: ADALIMUMAB
     Indication: RHEUMATOID ARTHRITIS
     Dosage: 40 MG, UNK
     Route: 058
     Dates: start: 201001, end: 201004
  23. ARAVA [Suspect]
     Active Substance: LEFLUNOMIDE
     Dosage: UNK
     Route: 048
     Dates: start: 201108
  24. DECORTIN [Concomitant]
     Active Substance: PREDNISONE
     Dosage: UNK
     Dates: start: 200802
  25. DECORTIN [Concomitant]
     Active Substance: PREDNISONE
     Dosage: UNK
     Dates: start: 201304
  26. DECORTIN [Concomitant]
     Active Substance: PREDNISONE
     Dosage: UNK
     Dates: start: 201410
  27. SULFASALAZINE. [Suspect]
     Active Substance: SULFASALAZINE
     Indication: RHEUMATOID ARTHRITIS
     Dosage: 2 DF, 2X/DAY
     Route: 048
     Dates: start: 200907, end: 201103
  28. INFLECTRA [Suspect]
     Active Substance: INFLIXIMAB-DYYB
     Indication: PRODUCT USED FOR UNKNOWN INDICATION
     Dosage: UNK
     Route: 065
     Dates: start: 201501, end: 201503
  29. ARAVA [Suspect]
     Active Substance: LEFLUNOMIDE
     Dosage: UNK
     Route: 048
     Dates: start: 201212, end: 201304

REACTIONS (16)
  - Hepatic enzyme increased [Recovered/Resolved]
  - Bone erosion [Unknown]
  - Suicide attempt [Recovered/Resolved]
  - Polyarthritis [Unknown]
  - Suicide attempt [Recovering/Resolving]
  - Hepatic lesion [Recovered/Resolved]
  - Eye oedema [Unknown]
  - Suicide attempt [Recovered/Resolved]
  - Condition aggravated [Not Recovered/Not Resolved]
  - Performance status decreased [Unknown]
  - Infusion related reaction [Recovered/Resolved]
  - Abdominal pain [Unknown]
  - Suicide attempt [Recovered/Resolved]
  - Bone erosion [Unknown]
  - Mobility decreased [Unknown]
  - Pyrexia [Recovered/Resolved]

NARRATIVE: CASE EVENT DATE: 201103
